FAERS Safety Report 13068929 (Version 1)
Quarter: 2016Q4

REPORT INFORMATION
  Report Type: Spontaneous
  Country: US (occurrence: US)
  Receive Date: 20161228
  Receipt Date: 20161228
  Transmission Date: 20170207
  Serious: No
  Sender: FDA-Public Use
  Company Number: US-ASTRAZENECA-2016SF32513

PATIENT
  Age: 72 Year
  Sex: Female
  Weight: 63.5 kg

DRUGS (6)
  1. HYDROCHLOROTHIAZIDE WITH TRIAMTERENE [Concomitant]
     Active Substance: HYDROCHLOROTHIAZIDE\TRIAMTERENE
  2. MONTELUKAST [Concomitant]
     Active Substance: MONTELUKAST SODIUM
  3. ESOMEPRAZOLE [Suspect]
     Active Substance: ESOMEPRAZOLE
     Route: 048
  4. BROVANA [Suspect]
     Active Substance: ARFORMOTEROL TARTRATE
     Indication: CHRONIC OBSTRUCTIVE PULMONARY DISEASE
     Dosage: 15MCG/2ML TWO TIMES PER DAY
     Route: 055
     Dates: start: 201610
  5. BROVANA [Suspect]
     Active Substance: ARFORMOTEROL TARTRATE
     Indication: MULTIPLE ALLERGIES
     Dosage: 15MCG/2ML TWO TIMES PER DAY
     Route: 055
     Dates: start: 201610
  6. BUDESONIDE. [Suspect]
     Active Substance: BUDESONIDE
     Indication: ADMINISTRATION SITE HYPERSENSITIVITY
     Dosage: TWO TIMES A DAY
     Route: 055
     Dates: start: 201610

REACTIONS (7)
  - Chronic obstructive pulmonary disease [Unknown]
  - Drug hypersensitivity [Unknown]
  - Cough [Unknown]
  - Sensitivity of teeth [Not Recovered/Not Resolved]
  - Gingival pain [Not Recovered/Not Resolved]
  - Dyspnoea [Unknown]
  - Hypertension [Unknown]

NARRATIVE: CASE EVENT DATE: 201610
